FAERS Safety Report 10163784 (Version 1)
Quarter: 2014Q2

REPORT INFORMATION
  Report Type: Spontaneous
  Country: SG (occurrence: SG)
  Receive Date: 20140509
  Receipt Date: 20140509
  Transmission Date: 20141212
  Serious: Yes (Hospitalization, Other)
  Sender: FDA-Public Use
  Company Number: SG-ABBVIE-14P-141-1235904-00

PATIENT
  Age: 22 Year
  Sex: Male

DRUGS (2)
  1. KLACID [Suspect]
     Indication: UPPER RESPIRATORY TRACT INFECTION
     Route: 048
     Dates: start: 20140226, end: 20140226
  2. DEXTROMETHORPHAN [Suspect]
     Indication: COUGH
     Dates: start: 20140226, end: 20140226

REACTIONS (4)
  - Angioedema [Recovered/Resolved]
  - Eye swelling [Recovered/Resolved]
  - Wheezing [Recovered/Resolved]
  - Anaphylactoid reaction [Recovered/Resolved]
